FAERS Safety Report 7739812-5 (Version None)
Quarter: 2011Q3

REPORT INFORMATION
  Report Type: 
  Country: None (occurrence: None)
  Receive Date: 20110909
  Receipt Date: 20110830
  Transmission Date: 20111222
  Serious: No
  Sender: FDA-Public Use
  Company Number: PHHY2011US58931

PATIENT
  Sex: Female
  Weight: 127 kg

DRUGS (1)
  1. TASIGNA [Suspect]
     Indication: CHRONIC MYELOID LEUKAEMIA
     Dosage: 400 MG, BID
     Route: 048
     Dates: start: 20110502

REACTIONS (4)
  - FATIGUE [None]
  - VOMITING [None]
  - NAUSEA [None]
  - DIARRHOEA [None]
